FAERS Safety Report 4543219-1 (Version None)
Quarter: 2004Q4

REPORT INFORMATION
  Report Type: 
  Country: None (occurrence: None)
  Receive Date: 20041230
  Receipt Date: 20041220
  Transmission Date: 20050328
  Serious: Yes (Other)
  Sender: FDA-Public Use
  Company Number: 2004115634

PATIENT
  Sex: Male
  Weight: 62.5964 kg

DRUGS (3)
  1. KAOPECTATE (ATTAPULGITE) [Suspect]
     Indication: DIARRHOEA
     Dosage: ORAL
     Route: 048
  2. PROPRANOLOL HYDROCHLORIDE (PROPRANOLOL HYDROCHLORIDE) [Concomitant]
  3. FUROSEMIDE [Concomitant]

REACTIONS (2)
  - BLADDER CANCER [None]
  - PROSTATE CANCER [None]
